FAERS Safety Report 12649723 (Version 1)
Quarter: 2016Q3

REPORT INFORMATION
  Report Type: Spontaneous
  Country: US (occurrence: US)
  Receive Date: 20160812
  Receipt Date: 20160812
  Transmission Date: 20161109
  Serious: No
  Sender: FDA-Public Use
  Company Number: US-IMPAX LABORATORIES, INC-2016-IPXL-00272

PATIENT
  Sex: Female

DRUGS (1)
  1. MIXED AMPHETAMINE SALTS [Suspect]
     Active Substance: AMPHETAMINE ASPARTATE\AMPHETAMINE SULFATE\DEXTROAMPHETAMINE SACCHARATE\DEXTROAMPHETAMINE SULFATE
     Indication: ATTENTION DEFICIT/HYPERACTIVITY DISORDER
     Dosage: UNK
     Route: 048

REACTIONS (6)
  - Condition aggravated [Unknown]
  - Feeling jittery [Unknown]
  - Attention deficit/hyperactivity disorder [Unknown]
  - Migraine [Unknown]
  - Irritability [Unknown]
  - Anxiety [Unknown]

NARRATIVE: CASE EVENT DATE: 201603
